FAERS Safety Report 10523846 (Version 1)
Quarter: 2014Q4

REPORT INFORMATION
  Report Type: Spontaneous
  Country: US (occurrence: None)
  Receive Date: 20141015
  Receipt Date: 20141015
  Transmission Date: 20150528
  Serious: Yes (Life-Threatening, Other)
  Sender: FDA-Public Use
  Company Number: None

PATIENT
  Age: 50 Year
  Sex: Female

DRUGS (3)
  1. SAPHRIS [Suspect]
     Active Substance: ASENAPINE MALEATE
     Indication: BIPOLAR DISORDER
     Route: 048
     Dates: start: 20141001, end: 20141001
  2. LATUDA [Suspect]
     Active Substance: LURASIDONE HYDROCHLORIDE
     Dosage: 1 PILL
  3. LATUDA [Concomitant]
     Active Substance: LURASIDONE HYDROCHLORIDE

REACTIONS (17)
  - Urticaria [None]
  - Paranoia [None]
  - Insomnia [None]
  - Loss of consciousness [None]
  - Depression [None]
  - Aggression [None]
  - Impaired driving ability [None]
  - Mouth injury [None]
  - Visual impairment [None]
  - Dizziness [None]
  - Adverse reaction [None]
  - Abnormal behaviour [None]
  - Rash [None]
  - Sedation [None]
  - Fall [None]
  - Weight increased [None]
  - Restlessness [None]

NARRATIVE: CASE EVENT DATE: 20141001
